FAERS Safety Report 7351092-1 (Version None)
Quarter: 2011Q1

REPORT INFORMATION
  Report Type: 
  Country: None (occurrence: None)
  Receive Date: 20110314
  Receipt Date: 20110308
  Transmission Date: 20110831
  Serious: Yes (Other)
  Sender: FDA-Public Use
  Company Number: US-PFIZER INC-2011051768

PATIENT
  Sex: Male

DRUGS (1)
  1. CHAPSTICK LIP BALM [Suspect]
     Dosage: UNK

REACTIONS (4)
  - RIB FRACTURE [None]
  - LOWER LIMB FRACTURE [None]
  - DEPENDENCE [None]
  - ROAD TRAFFIC ACCIDENT [None]
